FAERS Safety Report 15433099 (Version 1)
Quarter: 2018Q3

REPORT INFORMATION
  Report Type: Spontaneous
  Country: US (occurrence: US)
  Receive Date: 20180927
  Receipt Date: 20180927
  Transmission Date: 20181010
  Serious: No
  Sender: FDA-Public Use
  Company Number: US-NOVEN PHARMACEUTICALS, INC.-US2017001434

PATIENT

DRUGS (3)
  1. COMBIPATCH [Suspect]
     Active Substance: ESTRADIOL\NORETHINDRONE ACETATE
     Indication: NIGHT SWEATS
  2. XANAX [Concomitant]
     Active Substance: ALPRAZOLAM
  3. COMBIPATCH [Suspect]
     Active Substance: ESTRADIOL\NORETHINDRONE ACETATE
     Indication: HOT FLUSH
     Dosage: 50/140 MG, UNK
     Route: 062
     Dates: start: 2017, end: 2017

REACTIONS (6)
  - Drug prescribing error [Recovered/Resolved]
  - Hypersensitivity [Unknown]
  - Product administered at inappropriate site [Recovered/Resolved]
  - Product adhesion issue [Unknown]
  - Application site burn [Unknown]
  - Therapy cessation [Not Recovered/Not Resolved]

NARRATIVE: CASE EVENT DATE: 2017
